FAERS Safety Report 9789958 (Version 1)
Quarter: 2013Q4

REPORT INFORMATION
  Report Type: Spontaneous
  Country: US (occurrence: None)
  Receive Date: 20131230
  Receipt Date: 20131230
  Transmission Date: 20140711
  Serious: Yes (Life-Threatening, Hospitalization)
  Sender: FDA-Public Use
  Company Number: None

PATIENT
  Age: 73 Year
  Sex: Female
  Weight: 63.5 kg

DRUGS (1)
  1. FLUTICASONE [Suspect]
     Indication: SINUS DISORDER
     Dosage: INHALATION
     Dates: start: 20130831, end: 20131220

REACTIONS (1)
  - Anaphylactic reaction [None]
